FAERS Safety Report 10816098 (Version 1)
Quarter: 2015Q1

REPORT INFORMATION
  Report Type: Report from Study
  Country: US (occurrence: US)
  Receive Date: 20150218
  Receipt Date: 20150218
  Transmission Date: 20150721
  Serious: No
  Sender: FDA-Public Use
  Company Number: US-ABBVIE-14K-163-1286478-00

PATIENT
  Age: 31 Year
  Sex: Male
  Weight: 78.54 kg

DRUGS (4)
  1. HUMIRA [Suspect]
     Active Substance: ADALIMUMAB
     Indication: COLITIS ULCERATIVE
     Dates: start: 2008, end: 2008
  2. HUMIRA [Suspect]
     Active Substance: ADALIMUMAB
     Dates: start: 2008, end: 201307
  3. HUMIRA [Suspect]
     Active Substance: ADALIMUMAB
     Dates: start: 201307, end: 201404
  4. HUMIRA [Suspect]
     Active Substance: ADALIMUMAB
     Dates: start: 2008, end: 2008

REACTIONS (3)
  - Back pain [Not Recovered/Not Resolved]
  - Fatigue [Not Recovered/Not Resolved]
  - Colitis ulcerative [Not Recovered/Not Resolved]

NARRATIVE: CASE EVENT DATE: 201408
